FAERS Safety Report 25502868 (Version 1)
Quarter: 2025Q3

REPORT INFORMATION
  Report Type: Spontaneous
  Country: US (occurrence: US)
  Receive Date: 20250702
  Receipt Date: 20250702
  Transmission Date: 20251020
  Serious: No
  Sender: VIIV
  Company Number: US-GSKCCFUS-Case-02322368_AE-124332

PATIENT
  Age: 6 Year
  Sex: Male

DRUGS (1)
  1. TIVICAY PD [Suspect]
     Active Substance: DOLUTEGRAVIR SODIUM
     Indication: Prophylaxis against HIV infection
     Dosage: 5 DF, QD

REACTIONS (1)
  - Off label use [Unknown]
